FAERS Safety Report 24646941 (Version 2)
Quarter: 2024Q4

REPORT INFORMATION
  Report Type: Spontaneous
  Country: IN (occurrence: IN)
  Receive Date: 20241121
  Receipt Date: 20241206
  Transmission Date: 20250114
  Serious: Yes (Hospitalization, Other)
  Sender: RANBAXY
  Company Number: IN-SUN PHARMACEUTICAL INDUSTRIES LTD-2024R1-480054

PATIENT
  Sex: Male
  Weight: 2.578 kg

DRUGS (6)
  1. DIGOXIN [Suspect]
     Active Substance: DIGOXIN
     Indication: Supraventricular tachycardia
     Dosage: 0.25 MILLIGRAM, QD
     Route: 064
  2. DIGOXIN [Suspect]
     Active Substance: DIGOXIN
     Dosage: 0.125 MILLIGRAM
     Route: 064
  3. FLECAINIDE [Suspect]
     Active Substance: FLECAINIDE
     Indication: Supraventricular tachycardia
     Dosage: 50 MILLIGRAM, BID
     Route: 064
  4. FLECAINIDE [Suspect]
     Active Substance: FLECAINIDE
     Dosage: 100 MILLIGRAM, TID
     Route: 064
  5. FLECAINIDE [Suspect]
     Active Substance: FLECAINIDE
     Dosage: 2 MILLIGRAM, TID
     Route: 064
  6. DIGOXIN [Suspect]
     Active Substance: DIGOXIN
     Indication: Supraventricular tachycardia
     Dosage: 1.1 NG/ML
     Route: 064

REACTIONS (3)
  - Foetal exposure during pregnancy [Unknown]
  - Supraventricular tachyarrhythmia [Recovered/Resolved]
  - Premature baby [Unknown]
